FAERS Safety Report 5558762-6 (Version None)
Quarter: 2007Q4

REPORT INFORMATION
  Report Type: 
  Country: None (occurrence: None)
  Receive Date: 20071214
  Receipt Date: 20071204
  Transmission Date: 20080405
  Serious: Yes (Hospitalization, Other)
  Sender: FDA-Public Use
  Company Number: US-ABBOTT-07P-163-0427663-00

PATIENT
  Sex: Female
  Weight: 67.192 kg

DRUGS (3)
  1. HUMIRA [Suspect]
     Indication: RHEUMATOID ARTHRITIS
     Dosage: LAST AND ONLY DOSE
     Route: 058
     Dates: start: 20071106, end: 20071106
  2. METHOTREXATE [Concomitant]
     Indication: RHEUMATOID ARTHRITIS
     Route: 048
     Dates: start: 20040101, end: 20071120
  3. LORATADINE [Concomitant]
     Indication: INSOMNIA
     Route: 048

REACTIONS (7)
  - ASTHENIA [None]
  - BLOOD SODIUM DECREASED [None]
  - JOINT FLUID DRAINAGE [None]
  - LOSS OF CONTROL OF LEGS [None]
  - LUPUS-LIKE SYNDROME [None]
  - PYREXIA [None]
  - RESORPTION BONE INCREASED [None]
